FAERS Safety Report 5519453-0 (Version None)
Quarter: 2007Q4

REPORT INFORMATION
  Report Type: 
  Country: None (occurrence: None)
  Receive Date: 20071116
  Receipt Date: 20071106
  Transmission Date: 20080405
  Serious: Yes (Hospitalization)
  Sender: FDA-Public Use
  Company Number: DE-ROCHE-446720

PATIENT
  Age: 66 Year

DRUGS (6)
  1. INTERFERON ALFA-2A [Suspect]
     Dosage: LAST ADMINISTRATION PRIOR TO THE EVENT WAS ON 03 APRIL 2006.
     Route: 065
     Dates: start: 20060313, end: 20060505
  2. INTERFERON ALFA-2A [Suspect]
     Dosage: LAST ADMINISTRATION PRIOR TO THE EVENTS WAS ON 31 JULY 2006.
     Route: 065
  3. INTERLEUKIN-2 [Suspect]
     Dosage: LAST ADMINISTRATION PRIOR TO THE EVENTS WAS ON 06 APRIL 2006 AND ON 03 AUGUST 2006.
     Route: 065
  4. PARACETAMOL [Suspect]
     Indication: DRUG USE FOR UNKNOWN INDICATION
     Dosage: DRUG GIVEN IN APRIL 2006 AND IN AUGUST 2006 PRIOR TO THE ONSET OF THE EVENTS.
     Route: 065
     Dates: start: 20060301
  5. PASPERTIN [Suspect]
     Indication: DRUG USE FOR UNKNOWN INDICATION
     Dosage: DRUG GIVEN IN APRIL 2006 AND IN AUGUST 2006 PRIOR TO THE ONSET OF THE EVENTS.
     Route: 065
     Dates: start: 20060301
  6. NOVALGIN [Suspect]
     Indication: DRUG USE FOR UNKNOWN INDICATION
     Dosage: DRUG GIVEN IN APRIL 2006 AND IN AUGUST 2006 PRIOR TO THE ONSET OF THE EVENTS.
     Route: 065
     Dates: start: 20060301

REACTIONS (3)
  - DEHYDRATION [None]
  - DIARRHOEA [None]
  - VOMITING [None]
